FAERS Safety Report 23223290 (Version 1)
Quarter: 2023Q4

REPORT INFORMATION
  Report Type: Spontaneous
  Country: US (occurrence: US)
  Receive Date: 20231123
  Receipt Date: 20231123
  Transmission Date: 20240110
  Serious: No
  Sender: FDA-Public Use
  Company Number: US-BAUSCHBL-2023BNL011729

PATIENT
  Sex: Female

DRUGS (11)
  1. PROLENSA [Suspect]
     Active Substance: BROMFENAC SODIUM
     Indication: Retinal haemorrhage
     Dosage: 1 DROP INTO EACH EYE ONCE DAILY AROUND NOON
     Route: 065
     Dates: start: 20231111
  2. PROLENSA [Suspect]
     Active Substance: BROMFENAC SODIUM
     Indication: Product use in unapproved indication
  3. NP THYROID [Concomitant]
     Active Substance: LEVOTHYROXINE\LIOTHYRONINE
     Indication: Product used for unknown indication
     Dosage: 1.5 TABLETS, MONDAY AND THURSDAY
  4. RHOPRESSA [Concomitant]
     Active Substance: NETARSUDIL MESYLATE
     Indication: Product used for unknown indication
  5. DORZOLAMIDE [Concomitant]
     Active Substance: DORZOLAMIDE
     Indication: Product used for unknown indication
  6. LATANOPROST [Concomitant]
     Active Substance: LATANOPROST
     Indication: Product used for unknown indication
  7. SULFASALAZINE [Concomitant]
     Active Substance: SULFASALAZINE
     Indication: Product used for unknown indication
  8. LEFLUNOMIDE [Concomitant]
     Active Substance: LEFLUNOMIDE
     Indication: Product used for unknown indication
  9. VERAPAMIL [Concomitant]
     Active Substance: VERAPAMIL HYDROCHLORIDE
     Indication: Product used for unknown indication
  10. METOPROLOL [Concomitant]
     Active Substance: METOPROLOL
     Indication: Product used for unknown indication
  11. METOPROLOL [Concomitant]
     Active Substance: METOPROLOL

REACTIONS (2)
  - Heart rate increased [Unknown]
  - Product use in unapproved indication [Unknown]

NARRATIVE: CASE EVENT DATE: 20231111
